FAERS Safety Report 6915694-6 (Version None)
Quarter: 2010Q3

REPORT INFORMATION
  Report Type: 
  Country: None (occurrence: None)
  Receive Date: 20100804
  Receipt Date: 20100729
  Transmission Date: 20110219
  Serious: Yes (Other)
  Sender: FDA-Public Use
  Company Number: 012186

PATIENT
  Sex: Female
  Weight: 65 kg

DRUGS (2)
  1. NEUPRO [Suspect]
     Indication: RESTLESS LEGS SYNDROME
     Dosage: 2 MG QD TRANSDERMAL
     Route: 062
     Dates: start: 20080616, end: 20100120
  2. TRAZODONE HCL [Concomitant]

REACTIONS (1)
  - RESTLESS LEGS SYNDROME [None]
